FAERS Safety Report 18223870 (Version 1)
Quarter: 2020Q3

REPORT INFORMATION
  Report Type: Spontaneous
  Country: US (occurrence: US)
  Receive Date: 20200902
  Receipt Date: 20200902
  Transmission Date: 20201103
  Serious: No
  Sender: FDA-Public Use
  Company Number: US-FRESENIUS MEDICAL CARE RENAL THERAPIES GROUP-FMC-2008-001013

PATIENT
  Age: 50 Year
  Sex: Male

DRUGS (3)
  1. DELFLEX WITH DEXTROSE 1.5% LOW MAGNESIUM LOW CALCIUM [Suspect]
     Active Substance: CALCIUM CHLORIDE\DEXTROSE\MAGNESIUM CHLORIDE\SODIUM CHLORIDE\SODIUM LACTATE
     Indication: END STAGE RENAL DISEASE
     Dosage: FILL VOLUME 1000 ML, 4 EXCHANGES, NO LAST FILL, NO DAYTIME EXCHANGE, SINCE 08JUN2020
     Route: 033
     Dates: start: 20200608
  2. DELFLEX WITH DEXTROSE 2.5% LOW MAGNESIUM LOW CALCIUM [Suspect]
     Active Substance: CALCIUM CHLORIDE\DEXTROSE\MAGNESIUM CHLORIDE\SODIUM CHLORIDE\SODIUM LACTATE
     Indication: END STAGE RENAL DISEASE
     Dosage: FILL VOLUME 1000 ML, 4 EXCHANGES, NO LAST FILL, NO DAYTIME EXCHANGE, SINCE 08JUN2020
     Route: 033
     Dates: start: 20200608
  3. DELFLEX WITH DEXTROSE 4.25% LOW MAGNESIUM LOW CALCIUM [Suspect]
     Active Substance: CALCIUM CHLORIDE\DEXTROSE\MAGNESIUM CHLORIDE\SODIUM CHLORIDE\SODIUM LACTATE
     Indication: END STAGE RENAL DISEASE
     Dosage: FILL VOLUME 1000 ML, 4 EXCHANGES, NO LAST FILL, NO DAYTIME EXCHANGE, SINCE 08JUN2020
     Route: 033
     Dates: start: 20200608

REACTIONS (3)
  - Nausea [Recovering/Resolving]
  - Treatment noncompliance [Unknown]
  - Abdominal pain [Recovering/Resolving]
